FAERS Safety Report 10438923 (Version 1)
Quarter: 2014Q3

REPORT INFORMATION
  Report Type: Spontaneous
  Country: US (occurrence: US)
  Receive Date: 20140908
  Receipt Date: 20140908
  Transmission Date: 20150326
  Serious: No
  Sender: FDA-Public Use
  Company Number: US-BRISTOL-MYERS SQUIBB COMPANY-21188297

PATIENT
  Sex: Female

DRUGS (1)
  1. ABILIFY [Suspect]
     Active Substance: ARIPIPRAZOLE
     Indication: DEPRESSION
     Dosage: STRONGEST DOSE
     Route: 048
     Dates: start: 2010, end: 2011

REACTIONS (5)
  - Milk allergy [Not Recovered/Not Resolved]
  - Off label use [Unknown]
  - Normal newborn [Unknown]
  - Twin pregnancy [Recovered/Resolved]
  - Heart rate irregular [Not Recovered/Not Resolved]

NARRATIVE: CASE EVENT DATE: 20120104
